FAERS Safety Report 7971232-0 (Version None)
Quarter: 2011Q4

REPORT INFORMATION
  Report Type: 
  Country: None (occurrence: None)
  Receive Date: 20111212
  Receipt Date: 20111206
  Transmission Date: 20120403
  Serious: Yes (Death, Other)
  Sender: FDA-Public Use
  Company Number: JP-PFIZER INC-2011288659

PATIENT
  Age: 72 Year
  Sex: Male
  Weight: 56.2 kg

DRUGS (15)
  1. OXYCONTIN [Concomitant]
     Indication: PAIN
     Dosage: 10 MG/DAY
     Route: 048
     Dates: start: 20110811, end: 20111107
  2. FAMOTIDINE [Concomitant]
     Dosage: 10 MG, 1X/DAY
     Route: 041
     Dates: start: 20111111
  3. PROCHLORPERAZINE [Concomitant]
     Indication: NAUSEA
     Dosage: 5 MG, 3X/DAY
     Route: 048
     Dates: start: 20111005, end: 20111126
  4. MAGNESIUM SULFATE [Concomitant]
     Indication: CONSTIPATION
     Dosage: 330 MG, 3X/DAY
     Route: 048
     Dates: start: 20111005, end: 20111126
  5. LACTEC [Concomitant]
     Dosage: 500 ML, 1X/DAY
     Route: 041
     Dates: start: 20111111
  6. SOLDEM 3A [Concomitant]
     Dosage: 500 ML, 1X/DAY
     Route: 041
     Dates: start: 20111111
  7. GEMZAR [Suspect]
     Dosage: 1500 MG DAILY
     Route: 042
     Dates: end: 20111126
  8. FENTANYL CITRATE [Concomitant]
     Indication: PAIN
     Dosage: 12 MG/DAY, ONCE DAILY
     Route: 062
     Dates: start: 20111005
  9. MUCOSTA [Concomitant]
     Indication: GASTRITIS
     Dosage: 100 MG, 3X/DAY
     Route: 048
     Dates: start: 20110731, end: 20111126
  10. OXYCONTIN [Concomitant]
     Dosage: 200 MG, 2X/DAY
     Route: 048
     Dates: start: 20111108, end: 20111126
  11. LOXONIN [Concomitant]
     Indication: PAIN
     Dosage: 60 MG, 3X/DAY
     Route: 048
     Dates: start: 20110731, end: 20111126
  12. RABEPRAZOLE SODIUM [Concomitant]
     Indication: GASTROOESOPHAGEAL REFLUX DISEASE
     Dosage: 10 MG, 1X/DAY
     Route: 048
     Dates: start: 20110731, end: 20111126
  13. NOVORAPID [Concomitant]
     Route: 058
  14. LYRICA [Suspect]
     Indication: PAIN
     Dosage: 75 MG, 2X/DAY
     Route: 048
     Dates: start: 20111111, end: 20111125
  15. OXINORM [Concomitant]
     Indication: PAIN
     Dosage: 70 MG, 2 TO 3X/DAY
     Route: 048
     Dates: start: 20111005, end: 20111126

REACTIONS (1)
  - INTERSTITIAL LUNG DISEASE [None]
